APPROVED DRUG PRODUCT: LOPRESSOR HCT
Active Ingredient: HYDROCHLOROTHIAZIDE; METOPROLOL TARTRATE
Strength: 50MG;100MG **Federal Register determination that product was not discontinued or withdrawn for safety or effectiveness reasons**
Dosage Form/Route: TABLET;ORAL
Application: N018303 | Product #003
Applicant: VALIDUS PHARMACEUTICALS LLC
Approved: Dec 31, 1984 | RLD: Yes | RS: No | Type: DISCN